FAERS Safety Report 18679362 (Version 1)
Quarter: 2020Q4

REPORT INFORMATION
  Report Type: Spontaneous
  Country: US (occurrence: US)
  Receive Date: 20201230
  Receipt Date: 20201230
  Transmission Date: 20210114
  Serious: Yes (Other)
  Sender: FDA-Public Use
  Company Number: US-AMGEN-USASP2020209157

PATIENT

DRUGS (2)
  1. CB 839 [Suspect]
     Active Substance: TELAGLENASTAT
     Indication: COLORECTAL CANCER METASTATIC
     Dosage: 800 MILLIGRAM, BID
     Route: 065
  2. PANITUMUMAB [Suspect]
     Active Substance: PANITUMUMAB
     Indication: COLORECTAL CANCER METASTATIC
     Dosage: 6 MILLIGRAM/KILOGRAM (ON DAY 1 AND 15)
     Route: 065

REACTIONS (1)
  - Colorectal cancer metastatic [Unknown]
